FAERS Safety Report 5587732-7 (Version None)
Quarter: 2007Q4

REPORT INFORMATION
  Report Type: 
  Country: None (occurrence: None)
  Receive Date: 20071210
  Receipt Date: 20070402
  Transmission Date: 20080405
  Serious: Yes (Other)
  Sender: FDA-Public Use
  Company Number: SPV1-2007-01894

PATIENT
  Age: 10 Year
  Sex: Male

DRUGS (1)
  1. ADDERALL 10 [Suspect]
     Dosage: 15 MG, 1X/DAY; QD,
     Dates: start: 20070301, end: 20070301

REACTIONS (1)
  - PSYCHOTIC DISORDER [None]
